FAERS Safety Report 13035501 (Version 1)
Quarter: 2016Q4

REPORT INFORMATION
  Report Type: Spontaneous
  Country: US (occurrence: US)
  Receive Date: 20161216
  Receipt Date: 20161216
  Transmission Date: 20170207
  Serious: No
  Sender: FDA-Public Use
  Company Number: US-ASTELLAS-2015US044402

PATIENT
  Sex: Female

DRUGS (3)
  1. TARCEVA [Suspect]
     Active Substance: ERLOTINIB HYDROCHLORIDE
     Route: 065
  2. TARCEVA [Suspect]
     Active Substance: ERLOTINIB HYDROCHLORIDE
     Indication: LUNG ADENOCARCINOMA
     Dosage: UNK, ONCE DAILY EVERY EVENING
     Route: 065
     Dates: start: 201402
  3. TARCEVA [Suspect]
     Active Substance: ERLOTINIB HYDROCHLORIDE
     Route: 065

REACTIONS (20)
  - Insomnia [Unknown]
  - Fatigue [Recovered/Resolved]
  - Diarrhoea [Unknown]
  - Alopecia [Unknown]
  - Confusional state [Unknown]
  - Dry skin [Unknown]
  - Rash [Unknown]
  - Hyperhidrosis [Unknown]
  - Hypophagia [Unknown]
  - Rosacea [Unknown]
  - Asthenia [Recovered/Resolved]
  - Swelling [Unknown]
  - Onychoclasis [Unknown]
  - Back pain [Unknown]
  - Skin disorder [Unknown]
  - Feeling abnormal [Unknown]
  - Malaise [Unknown]
  - Dry mouth [Unknown]
  - Arthralgia [Unknown]
  - Rash pustular [Unknown]

NARRATIVE: CASE EVENT DATE: 2014
